FAERS Safety Report 20331295 (Version 1)
Quarter: 2022Q1

REPORT INFORMATION
  Report Type: Spontaneous
  Country: US (occurrence: None)
  Receive Date: 20220112
  Receipt Date: 20220112
  Transmission Date: 20220424
  Serious: Yes (Death)
  Sender: FDA-Public Use
  Company Number: None

PATIENT
  Age: 80 Year
  Sex: Male

DRUGS (2)
  1. MYCOPHENOLATE MOFETIL [Suspect]
     Active Substance: MYCOPHENOLATE MOFETIL
     Dosage: 500MG BID ORAL?
     Route: 048
     Dates: start: 201506, end: 20211229
  2. GENGRAF [Concomitant]
     Active Substance: CYCLOSPORINE

REACTIONS (1)
  - Death [None]

NARRATIVE: CASE EVENT DATE: 20211229
